FAERS Safety Report 13528786 (Version 2)
Quarter: 2017Q2

REPORT INFORMATION
  Report Type: Report from Study
  Country: US (occurrence: US)
  Receive Date: 20170509
  Receipt Date: 20170619
  Transmission Date: 20170830
  Serious: Yes (Hospitalization, Other)
  Sender: FDA-Public Use
  Company Number: US-BAYER-2016-050380

PATIENT
  Age: 35 Year
  Sex: Female
  Weight: 162.36 kg

DRUGS (11)
  1. ADEMPAS [Suspect]
     Active Substance: RIOCIGUAT
     Indication: PULMONARY ARTERIAL HYPERTENSION
     Dosage: 1.5 MG, TID
  2. ADEMPAS [Suspect]
     Active Substance: RIOCIGUAT
     Indication: PULMONARY ARTERIAL HYPERTENSION
     Dosage: 2.5 MG, TID
  3. ADEMPAS [Suspect]
     Active Substance: RIOCIGUAT
     Indication: PULMONARY ARTERIAL HYPERTENSION
     Dosage: 2.5 MG, TID
  4. SELEXIPAG [Suspect]
     Active Substance: SELEXIPAG
     Dosage: 800 ?G, BID
  5. ADEMPAS [Suspect]
     Active Substance: RIOCIGUAT
     Indication: PULMONARY ARTERIAL HYPERTENSION
     Dosage: 2.5 MG, TID
     Route: 048
  6. COUMADIN [Concomitant]
     Active Substance: WARFARIN SODIUM
     Dosage: UNK
  7. ADEMPAS [Suspect]
     Active Substance: RIOCIGUAT
     Indication: PULMONARY ARTERIAL HYPERTENSION
     Dosage: UNK
     Dates: start: 20151117
  8. OPSUMIT [Concomitant]
     Active Substance: MACITENTAN
     Dosage: UNK
  9. ADEMPAS [Suspect]
     Active Substance: RIOCIGUAT
     Indication: PULMONARY ARTERIAL HYPERTENSION
     Dosage: 1 MG, TID
     Route: 048
  10. ADEMPAS [Suspect]
     Active Substance: RIOCIGUAT
     Indication: PULMONARY ARTERIAL HYPERTENSION
     Dosage: 1 MG, TID
  11. SELEXIPAG [Suspect]
     Active Substance: SELEXIPAG
     Dosage: 1400 ?G, BID

REACTIONS (21)
  - Road traffic accident [None]
  - Nausea [Unknown]
  - Decreased appetite [Unknown]
  - Neck pain [None]
  - Headache [None]
  - Fluid retention [Unknown]
  - Dizziness [Unknown]
  - Migraine [Unknown]
  - Abdominal discomfort [None]
  - Arthralgia [None]
  - Epistaxis [Unknown]
  - Toothache [Unknown]
  - Hypoxia [None]
  - Diarrhoea [None]
  - Drug intolerance [None]
  - Nausea [None]
  - Pulmonary hypertension [None]
  - Syncope [None]
  - Pain in jaw [Unknown]
  - Tooth fracture [None]
  - Musculoskeletal pain [None]

NARRATIVE: CASE EVENT DATE: 20160910
